FAERS Safety Report 7966226-5 (Version None)
Quarter: 2011Q4

REPORT INFORMATION
  Report Type: 
  Country: None (occurrence: None)
  Receive Date: 20111208
  Receipt Date: 20111201
  Transmission Date: 20120403
  Serious: No
  Sender: FDA-Public Use
  Company Number: US-BAYER-2011-116911

PATIENT

DRUGS (2)
  1. ALEVE (CAPLET) [Suspect]
     Indication: PAIN
  2. XANAX [Suspect]
     Indication: PAIN

REACTIONS (3)
  - UNEVALUABLE EVENT [None]
  - PAIN [None]
  - ABNORMAL DREAMS [None]
